FAERS Safety Report 26008001 (Version 1)
Quarter: 2025Q4

REPORT INFORMATION
  Report Type: Spontaneous
  Country: US (occurrence: US)
  Receive Date: 20251106
  Receipt Date: 20251106
  Transmission Date: 20260117
  Serious: No
  Sender: SANOFI AVENTIS
  Company Number: US-SA-2025SA319426

PATIENT
  Age: 72 Year

DRUGS (1)
  1. PRIFTIN [Suspect]
     Active Substance: RIFAPENTINE
     Indication: Nonspecific reaction
     Dosage: 6 UNK
     Route: 048

REACTIONS (1)
  - Off label use [Unknown]
